FAERS Safety Report 7641052-5 (Version None)
Quarter: 2011Q3

REPORT INFORMATION
  Report Type: 
  Country: None (occurrence: None)
  Receive Date: 20110728
  Receipt Date: 20110722
  Transmission Date: 20111222
  Serious: Yes (Death)
  Sender: FDA-Public Use
  Company Number: IT-ASTELLAS-2011EU004937

PATIENT
  Age: 30 Year
  Sex: Female

DRUGS (2)
  1. PROGRAF [Suspect]
     Indication: TRANSPLANT
     Dosage: UNK
     Route: 065
  2. ALEMTUZUMAB [Suspect]
     Indication: TRANSPLANT
     Dosage: 0.3 MG/KG, UNKNOWN/D
     Route: 065

REACTIONS (2)
  - MULTI-ORGAN FAILURE [None]
  - CYTOMEGALOVIRUS INFECTION [None]
